FAERS Safety Report 19496463 (Version 2)
Quarter: 2021Q3

REPORT INFORMATION
  Report Type: Spontaneous
  Country: US (occurrence: US)
  Receive Date: 20210706
  Receipt Date: 20210825
  Transmission Date: 20211014
  Serious: Yes (Hospitalization, Other)
  Sender: FDA-Public Use
  Company Number: US-GLAXOSMITHKLINE-US2021143494

PATIENT
  Sex: Female

DRUGS (1)
  1. ANORO ELLIPTA [Suspect]
     Active Substance: UMECLIDINIUM BROMIDE\VILANTEROL TRIFENATATE
     Indication: PRODUCT USED FOR UNKNOWN INDICATION
     Dosage: UNK, (62.5)
     Route: 055
     Dates: start: 20190501

REACTIONS (5)
  - Gallbladder operation [Unknown]
  - Economic problem [Unknown]
  - Hospitalisation [Unknown]
  - Pneumonia [Unknown]
  - Dyspnoea [Unknown]
